FAERS Safety Report 9728336 (Version 10)
Quarter: 2016Q1

REPORT INFORMATION
  Report Type: Report from Study
  Country: CA (occurrence: CA)
  Receive Date: 20131204
  Receipt Date: 20160114
  Transmission Date: 20160526
  Serious: Yes (Other)
  Sender: FDA-Public Use
  Company Number: PHHY2013CA017617

PATIENT
  Sex: Female

DRUGS (11)
  1. GLEEVEC [Suspect]
     Active Substance: IMATINIB MESYLATE
     Indication: CHRONIC MYELOID LEUKAEMIA
     Dosage: 400 MG, QD
     Route: 048
     Dates: start: 20130212
  2. GLEEVEC [Suspect]
     Active Substance: IMATINIB MESYLATE
     Dosage: 400 MG, QD
     Route: 048
  3. SYNTHROID [Concomitant]
     Active Substance: LEVOTHYROXINE SODIUM
     Dosage: 150 OT
     Route: 065
  4. CALCIUM [Concomitant]
     Active Substance: CALCIUM
     Indication: PRODUCT USED FOR UNKNOWN INDICATION
     Route: 065
  5. SYNTHROID [Concomitant]
     Active Substance: LEVOTHYROXINE SODIUM
     Dosage: UNK
     Route: 065
  6. LASIX [Concomitant]
     Active Substance: FUROSEMIDE
     Indication: PRODUCT USED FOR UNKNOWN INDICATION
     Route: 065
  7. GLEEVEC [Suspect]
     Active Substance: IMATINIB MESYLATE
     Dosage: 300 MG, QD
     Route: 048
  8. SYNTHROID [Concomitant]
     Active Substance: LEVOTHYROXINE SODIUM
     Indication: PRODUCT USED FOR UNKNOWN INDICATION
     Dosage: UNK
     Route: 065
  9. SYNTHROID [Concomitant]
     Active Substance: LEVOTHYROXINE SODIUM
     Dosage: 137 OT
     Route: 065
  10. VITAMIN D [Concomitant]
     Active Substance: CHOLECALCIFEROL
     Indication: PRODUCT USED FOR UNKNOWN INDICATION
     Route: 065
  11. SYNTHROID [Concomitant]
     Active Substance: LEVOTHYROXINE SODIUM
     Dosage: UNK

REACTIONS (36)
  - Pain in extremity [Unknown]
  - Supraventricular tachycardia [Unknown]
  - Chloasma [Unknown]
  - Cough [Unknown]
  - Musculoskeletal pain [Unknown]
  - Pruritus [Unknown]
  - Foot fracture [Unknown]
  - Platelet count decreased [Unknown]
  - Dysphonia [Unknown]
  - Eye swelling [Not Recovered/Not Resolved]
  - Arthralgia [Unknown]
  - Blood pressure decreased [Unknown]
  - Photosensitivity reaction [Unknown]
  - White blood cell count decreased [Unknown]
  - Fluid retention [Unknown]
  - Muscle spasms [Recovering/Resolving]
  - Rash [Unknown]
  - Nail discolouration [Unknown]
  - Limb injury [Unknown]
  - Temperature intolerance [Unknown]
  - Blood thyroid stimulating hormone abnormal [Unknown]
  - Bone pain [Not Recovered/Not Resolved]
  - Feeling cold [Unknown]
  - Aphonia [Unknown]
  - Nausea [Recovering/Resolving]
  - Skin discolouration [Unknown]
  - Weight increased [Unknown]
  - Fungal infection [Unknown]
  - Fatigue [Unknown]
  - Erythema [Unknown]
  - Flushing [Unknown]
  - Cardiac flutter [Recovered/Resolved]
  - Menstruation irregular [Unknown]
  - Burning sensation [Unknown]
  - Tooth disorder [Unknown]
  - Blood thyroid stimulating hormone increased [Unknown]
